FAERS Safety Report 9514745 (Version 1)
Quarter: 2013Q3

REPORT INFORMATION
  Report Type: Spontaneous
  Country: US (occurrence: US)
  Receive Date: 20130911
  Receipt Date: 20130911
  Transmission Date: 20140515
  Serious: Yes (Hospitalization)
  Sender: FDA-Public Use
  Company Number: US-AMGEN-USASP2013062834

PATIENT
  Age: 61 Year
  Sex: Female

DRUGS (3)
  1. ENBREL [Suspect]
     Indication: PSORIATIC ARTHROPATHY
     Dosage: UNK MG, 2 TIMES/WK
     Route: 065
     Dates: start: 20051116, end: 2008
  2. REMICADE [Suspect]
     Indication: PRODUCT USED FOR UNKNOWN INDICATION
     Dosage: UNK UNK, Q6WK
     Route: 065
     Dates: start: 2008, end: 20121204
  3. PREDNISONE [Suspect]
     Indication: PRODUCT USED FOR UNKNOWN INDICATION
     Dosage: UNK
     Route: 065

REACTIONS (9)
  - Hip arthroplasty [Recovered/Resolved]
  - Osteoarthritis [Recovered/Resolved]
  - Arthropathy [Recovered/Resolved]
  - Gait disturbance [Recovered/Resolved]
  - Fall [Recovered/Resolved]
  - Lower limb fracture [Recovered/Resolved]
  - Arthralgia [Recovered/Resolved]
  - Blood glucose increased [Recovered/Resolved]
  - Weight increased [Recovered/Resolved]
